FAERS Safety Report 21944831 (Version 1)
Quarter: 2023Q1

REPORT INFORMATION
  Report Type: Spontaneous
  Country: FR (occurrence: FR)
  Receive Date: 20230202
  Receipt Date: 20230202
  Transmission Date: 20230417
  Serious: Yes (Hospitalization)
  Sender: FDA-Public Use
  Company Number: None

PATIENT
  Age: 79 Year
  Sex: Female
  Weight: 90 kg

DRUGS (1)
  1. AMOXICILLIN [Suspect]
     Active Substance: AMOXICILLIN
     Indication: Intervertebral discitis
     Dosage: 12 GRAM DAILY; 12G/D IVSE,THERAPY END DATE :NASK,
     Dates: start: 20221224

REACTIONS (3)
  - Hepatic cytolysis [Recovered/Resolved]
  - Antibiotic level above therapeutic [Recovered/Resolved]
  - Metabolic encephalopathy [Recovering/Resolving]

NARRATIVE: CASE EVENT DATE: 20230101
